FAERS Safety Report 12474365 (Version 1)
Quarter: 2016Q2

REPORT INFORMATION
  Report Type: Spontaneous
  Country: US (occurrence: None)
  Receive Date: 20160616
  Receipt Date: 20160616
  Transmission Date: 20160815
  Serious: No
  Sender: FDA-Public Use
  Company Number: None

PATIENT
  Age: 33 Month
  Sex: Female
  Weight: 15.42 kg

DRUGS (3)
  1. CHILDRENS TYLENOL [Concomitant]
     Active Substance: ACETAMINOPHEN
  2. ?ALBUTEROL SULFATE INHALATION SOL, 2.5 MG NEPHRON PHARMACEUTICALS CORP [Suspect]
     Active Substance: ALBUTEROL SULFATE
     Indication: VIRAL INFECTION
     Route: 055
     Dates: start: 20160613, end: 20160615
  3. ESSENTIAL OILS OREGANO, FRANKINCENSE, BLACK PEPPER, MELALEUCA, PEPPERMINT, LAVANDER [Concomitant]

REACTIONS (4)
  - Aggression [None]
  - Abnormal behaviour [None]
  - Gait disturbance [None]
  - Screaming [None]

NARRATIVE: CASE EVENT DATE: 20160614
